FAERS Safety Report 25320274 (Version 1)
Quarter: 2025Q2

REPORT INFORMATION
  Report Type: Report from Study
  Country: US (occurrence: US)
  Receive Date: 20250515
  Receipt Date: 20250515
  Transmission Date: 20250717
  Serious: Yes (Other)
  Sender: ABBVIE
  Company Number: US-ABBVIE-6279303

PATIENT
  Age: 48 Year
  Sex: Female

DRUGS (2)
  1. RINVOQ [Suspect]
     Active Substance: UPADACITINIB
     Indication: Crohn^s disease
     Route: 048
     Dates: start: 20250314
  2. REMICADE [Suspect]
     Active Substance: INFLIXIMAB
     Indication: Product used for unknown indication
     Route: 065

REACTIONS (4)
  - Lupus-like syndrome [Recovering/Resolving]
  - Dry skin [Recovering/Resolving]
  - Rash papular [Recovering/Resolving]
  - Fatigue [Recovering/Resolving]
